FAERS Safety Report 19913035 (Version 2)
Quarter: 2021Q4

REPORT INFORMATION
  Report Type: Spontaneous
  Country: JP (occurrence: JP)
  Receive Date: 20211004
  Receipt Date: 20211015
  Transmission Date: 20220303
  Serious: Yes (Hospitalization, Other)
  Sender: FDA-Public Use
  Company Number: JP-MLMSERVICE-20210915-3106718-1

PATIENT
  Age: 46 Year
  Sex: Female
  Weight: 62.8 kg

DRUGS (6)
  1. METHYLPREDNISOLONE [Suspect]
     Active Substance: METHYLPREDNISOLONE
     Dosage: 1000 MG, 1X/DAY
  2. PREDNISOLONE [Suspect]
     Active Substance: PREDNISOLONE
     Indication: Immunosuppressant drug therapy
     Dosage: 60 MG, 1X/DAY (REDUCED TO 60 MG/DAY)
  3. PREDNISOLONE [Suspect]
     Active Substance: PREDNISOLONE
     Dosage: GRADUALLY TAPERED
  4. CYCLOPHOSPHAMIDE [Concomitant]
     Active Substance: CYCLOPHOSPHAMIDE
     Indication: Immunosuppressant drug therapy
     Dosage: 500 MG, 1X/DAY
  5. CLOTIAZEPAM [Concomitant]
     Active Substance: CLOTIAZEPAM
     Dosage: 15 MG, 1X/DAY
  6. TELMISARTAN [Concomitant]
     Active Substance: TELMISARTAN
     Dosage: 20 MG, 1X/DAY

REACTIONS (2)
  - Catecholamine crisis [Recovering/Resolving]
  - Hypertension [Recovering/Resolving]
